FAERS Safety Report 22013091 (Version 1)
Quarter: 2023Q1

REPORT INFORMATION
  Report Type: Spontaneous
  Country: IL (occurrence: None)
  Receive Date: 20230220
  Receipt Date: 20230220
  Transmission Date: 20230417
  Serious: Yes (Other)
  Sender: FDA-Public Use
  Company Number: IL-ROCHE-3287321

PATIENT
  Age: 14 Year
  Sex: Female

DRUGS (1)
  1. GAVRETO [Suspect]
     Active Substance: PRALSETINIB
     Indication: Papillary thyroid cancer
     Route: 048
     Dates: start: 202210

REACTIONS (2)
  - Amenorrhoea [Unknown]
  - Blood follicle stimulating hormone increased [Unknown]
